FAERS Safety Report 4978205-0 (Version None)
Quarter: 2006Q2

REPORT INFORMATION
  Report Type: 
  Country: None (occurrence: None)
  Receive Date: 20060414
  Receipt Date: 20060407
  Transmission Date: 20061013
  Serious: Yes (Hospitalization)
  Sender: FDA-Public Use
  Company Number: 163-21880-06040363

PATIENT
  Sex: Female

DRUGS (2)
  1. REVLIMID [Suspect]
     Indication: ANAEMIA
     Dosage: 10  MG, DAILY, ORAL
     Route: 048
     Dates: start: 20060308
  2. REVLIMID [Suspect]
     Indication: MYELODYSPLASTIC SYNDROME
     Dosage: 10  MG, DAILY, ORAL
     Route: 048
     Dates: start: 20060308

REACTIONS (2)
  - FALL [None]
  - HAEMOGLOBIN DECREASED [None]
